FAERS Safety Report 6066509-2 (Version None)
Quarter: 2009Q1

REPORT INFORMATION
  Report Type: 
  Country: None (occurrence: None)
  Receive Date: 20090205
  Receipt Date: 20080502
  Transmission Date: 20090719
  Serious: Yes (Death, Hospitalization)
  Sender: FDA-Public Use
  Company Number: CA-CELGENEUS-028-C5013-08020914

PATIENT
  Sex: Female
  Weight: 96.2 kg

DRUGS (5)
  1. CC-5013 [Suspect]
     Indication: MULTIPLE MYELOMA
     Route: 048
     Dates: start: 20080122, end: 20080211
  2. DEXAMETHASONE [Suspect]
     Indication: MULTIPLE MYELOMA
     Route: 065
     Dates: start: 20080122, end: 20080210
  3. ASPIRIN [Concomitant]
     Route: 065
  4. PARIET [Concomitant]
     Indication: GASTRIC ULCER
     Route: 065
  5. CIPROFLOXACIN HCL [Concomitant]
     Indication: INFECTION PROPHYLAXIS
     Route: 048

REACTIONS (1)
  - CEREBROVASCULAR ACCIDENT [None]
